FAERS Safety Report 23743380 (Version 1)
Quarter: 2024Q2

REPORT INFORMATION
  Report Type: Spontaneous
  Country: US (occurrence: US)
  Receive Date: 20240415
  Receipt Date: 20240415
  Transmission Date: 20240715
  Serious: Yes (Death, Life-Threatening, Hospitalization, Other)
  Sender: FDA-Public Use
  Company Number: None

PATIENT
  Age: 43 Year
  Sex: Male

DRUGS (2)
  1. CARVEDILOL [Suspect]
     Active Substance: CARVEDILOL
     Indication: Suicide attempt
     Dosage: CONSUMPTION OF APPROXIMATELY 400-500MG
  2. CARVEDILOL [Suspect]
     Active Substance: CARVEDILOL
     Dosage: CONSUMPTION OF APPROXIMATELY 400-500MG

REACTIONS (6)
  - Intentional overdose [Fatal]
  - Multiple organ dysfunction syndrome [Fatal]
  - Left ventricular dysfunction [Recovered/Resolved]
  - Hypoxia [Unknown]
  - Cardiogenic shock [Unknown]
  - Cardiac arrest [Recovered/Resolved]
